FAERS Safety Report 12567806 (Version 1)
Quarter: 2016Q3

REPORT INFORMATION
  Report Type: Spontaneous
  Country: US (occurrence: US)
  Receive Date: 20160718
  Receipt Date: 20160718
  Transmission Date: 20161109
  Serious: No
  Sender: FDA-Public Use
  Company Number: US-ASTELLAS-2016US008034

PATIENT
  Age: 77 Year
  Sex: Male

DRUGS (2)
  1. MYRBETRIQ [Suspect]
     Active Substance: MIRABEGRON
     Indication: PRODUCT USED FOR UNKNOWN INDICATION
     Route: 048
     Dates: start: 20160120, end: 20160212
  2. EUCERIN                            /00021201/ [Suspect]
     Active Substance: SALICYLIC ACID
     Indication: RASH
     Dosage: UNK, UNKNOWN FREQ.
     Route: 061

REACTIONS (4)
  - Urticaria [Unknown]
  - Rash pruritic [Unknown]
  - Dry skin [Unknown]
  - Blister [Unknown]

NARRATIVE: CASE EVENT DATE: 20160124
